FAERS Safety Report 4902217-6 (Version None)
Quarter: 2006Q1

REPORT INFORMATION
  Report Type: 
  Country: None (occurrence: None)
  Receive Date: 20060207
  Receipt Date: 20060125
  Transmission Date: 20060701
  Serious: Yes (Life-Threatening, Hospitalization, Other)
  Sender: FDA-Public Use
  Company Number: US-ABBOTT-06P-163-0323322-00

PATIENT
  Sex: Male
  Weight: 83.082 kg

DRUGS (5)
  1. DEPAKOTE ER [Suspect]
     Indication: AGGRESSION
     Route: 048
     Dates: start: 20041208
  2. DEPAKOTE ER [Suspect]
     Indication: AUTISM
  3. CLOZAPINE [Suspect]
     Indication: AGGRESSION
     Route: 048
     Dates: start: 20040201
  4. CLOZAPINE [Suspect]
     Indication: AUTISM
     Route: 048
     Dates: start: 20040201, end: 20050901
  5. DOCUSATE [Concomitant]
     Indication: DRUG USE FOR UNKNOWN INDICATION

REACTIONS (1)
  - GRANULOCYTOPENIA [None]
